FAERS Safety Report 16192447 (Version 1)
Quarter: 2019Q2

REPORT INFORMATION
  Report Type: Other
  Country: US (occurrence: US)
  Receive Date: 20190412
  Receipt Date: 20190412
  Transmission Date: 20190711
  Serious: Yes (Life-Threatening, Hospitalization, Other)
  Sender: FDA-Public Use
  Company Number: US-C B FLEET CO INC-201904-US-000899

PATIENT
  Sex: Female

DRUGS (1)
  1. GOODYS EXTRA STRENGTH [Suspect]
     Active Substance: ACETAMINOPHEN\ASPIRIN\CAFFEINE
     Indication: MUSCULOSKELETAL PAIN
     Dosage: 5 TO 7 POWDER PACKETS A DAY
     Route: 048

REACTIONS (7)
  - Overdose [None]
  - Blood potassium decreased [Unknown]
  - Incorrect product administration duration [None]
  - Drug dependence [Not Recovered/Not Resolved]
  - Anaemia [Unknown]
  - Inappropriate schedule of product administration [None]
  - Gastrointestinal haemorrhage [Recovering/Resolving]
